FAERS Safety Report 4963310-5 (Version None)
Quarter: 2006Q2

REPORT INFORMATION
  Report Type: 
  Country: None (occurrence: None)
  Receive Date: 20060405
  Receipt Date: 20060324
  Transmission Date: 20061013
  Serious: Yes (Other)
  Sender: FDA-Public Use
  Company Number: GB-BRISTOL-MYERS SQUIBB COMPANY-13325931

PATIENT
  Age: 8 Year
  Sex: Female
  Weight: 34 kg

DRUGS (2)
  1. KENALOG [Suspect]
     Indication: JUVENILE ARTHRITIS
     Route: 014
     Dates: start: 20050311
  2. IBUPROFEN [Concomitant]
     Indication: JUVENILE ARTHRITIS
     Route: 048
     Dates: start: 20050301

REACTIONS (2)
  - CUSHINGOID [None]
  - WEIGHT INCREASED [None]
